FAERS Safety Report 23415958 (Version 1)
Quarter: 2024Q1

REPORT INFORMATION
  Report Type: Spontaneous
  Country: AT (occurrence: AT)
  Receive Date: 20240118
  Receipt Date: 20240118
  Transmission Date: 20240410
  Serious: Yes (Hospitalization, Other)
  Sender: FDA-Public Use
  Company Number: AT-CELLTRION HEALTHCARE HUNGARY KFT-2019AT028754

PATIENT
  Age: 54 Year
  Sex: Female
  Weight: 75 kg

DRUGS (63)
  1. ABRAXANE [Suspect]
     Active Substance: PACLITAXEL
     Indication: HER2 positive breast cancer
     Dosage: 177.17 MG; DOSE ON 08 MAY 2018 DOSE ON 08/MAY/2018MOST RECENT DOSE PRIOR TO THE EVENT: 16/JAN/2019
     Route: 042
     Dates: start: 20180416
  2. CAPECITABINE [Suspect]
     Active Substance: CAPECITABINE
     Indication: Product used for unknown indication
     Dosage: 500 MG
     Route: 048
     Dates: start: 20191219
  3. CAPECITABINE [Suspect]
     Active Substance: CAPECITABINE
     Dosage: 500 MG
     Route: 048
     Dates: start: 20191126, end: 20191218
  4. CYCLOPHOSPHAMIDE [Suspect]
     Active Substance: CYCLOPHOSPHAMIDE
     Indication: HER2 positive breast cancer
     Dosage: 2.5 MG, EVERY 0.5 WEEK
     Route: 048
  5. CYCLOPHOSPHAMIDE [Suspect]
     Active Substance: CYCLOPHOSPHAMIDE
     Indication: Product used for unknown indication
     Dosage: 50 MG, QD
     Route: 048
     Dates: start: 20200219, end: 20200309
  6. METHOTREXATE [Suspect]
     Active Substance: METHOTREXATE
     Indication: HER2 positive breast cancer
     Dosage: 2.5 MG, EVERY 0.5 WEEK
     Route: 048
     Dates: end: 20200309
  7. PACLITAXEL [Suspect]
     Active Substance: PACLITAXEL
     Indication: Product used for unknown indication
     Dosage: UNK
     Route: 065
  8. NAVELBINE [Suspect]
     Active Substance: VINORELBINE TARTRATE
     Indication: HER2 positive breast cancer
     Dosage: 50 UG; RECENT DOSE: 28 OCT 2019
     Route: 048
     Dates: start: 20191011
  9. NERATINIB [Suspect]
     Active Substance: NERATINIB
     Indication: Product used for unknown indication
     Dosage: 1440 MG, QD
     Route: 048
     Dates: start: 20200108, end: 20200118
  10. NERATINIB [Suspect]
     Active Substance: NERATINIB
     Dosage: 1440 MG, QD
     Route: 048
     Dates: start: 20200119, end: 20200129
  11. PACLITAXEL [Suspect]
     Active Substance: PACLITAXEL
     Dosage: 147.76 MG, 1/WEEK
     Route: 042
     Dates: start: 20180522, end: 20180529
  12. PACLITAXEL [Suspect]
     Active Substance: PACLITAXEL
     Indication: Product used for unknown indication
     Dosage: 147.76 MG, LAST DOSE 09 APR 2018
     Route: 042
     Dates: start: 20180328, end: 20180409
  13. PACLITAXEL [Suspect]
     Active Substance: PACLITAXEL
     Dosage: 170.35 MG, QW
     Route: 042
     Dates: start: 20180626, end: 20180718
  14. PACLITAXEL [Suspect]
     Active Substance: PACLITAXEL
     Dosage: 171.51 MG, 1/WEEK
     Route: 042
     Dates: start: 20181102, end: 20181123
  15. PACLITAXEL [Suspect]
     Active Substance: PACLITAXEL
     Dosage: 171.51 MG, QW
     Route: 042
     Dates: start: 20181207, end: 20181221
  16. PACLITAXEL [Suspect]
     Active Substance: PACLITAXEL
     Dosage: 171.51 MG, QW
     Route: 042
     Dates: start: 20190109, end: 20190109
  17. PACLITAXEL [Suspect]
     Active Substance: PACLITAXEL
     Dosage: 172.67 MG, 1/WEEK
     Route: 042
     Dates: start: 20180515, end: 20180515
  18. PACLITAXEL [Suspect]
     Active Substance: PACLITAXEL
     Dosage: 172.67 MG, 1/WEEK
     Route: 042
     Dates: start: 20190116, end: 20190116
  19. PACLITAXEL [Suspect]
     Active Substance: PACLITAXEL
     Dosage: 172.67 MG, QW
     Route: 042
     Dates: start: 20180605, end: 20180605
  20. PACLITAXEL [Suspect]
     Active Substance: PACLITAXEL
     Dosage: 172.67 MG, QW
     Route: 042
     Dates: start: 20190102, end: 20190102
  21. PACLITAXEL [Suspect]
     Active Substance: PACLITAXEL
     Dosage: 177.17 MG, 1/WEEK
     Route: 042
     Dates: start: 20180416, end: 20180508
  22. PACLITAXEL [Suspect]
     Active Substance: PACLITAXEL
     Dosage: 177.17 MG, QW
     Route: 042
     Dates: start: 20180612, end: 20180612
  23. PERTUZUMAB [Suspect]
     Active Substance: PERTUZUMAB
     Indication: Product used for unknown indication
     Dosage: 420 MG, Q3W (EVERY 3 WEEKS)
     Route: 042
     Dates: start: 20181214, end: 20190109
  24. PERTUZUMAB [Suspect]
     Active Substance: PERTUZUMAB
     Dosage: 420 MG, Q3W (EVERY 3 WEEKS)
     Route: 042
     Dates: start: 20180423, end: 20180423
  25. PERTUZUMAB [Suspect]
     Active Substance: PERTUZUMAB
     Dosage: 840 MG, Q3W (EVERY 3 WEEK; MOST RECENT DOSE PRIOR TO THE EVENT: 28/MAR/2018, 14 DEC 2018)
     Route: 042
     Dates: start: 20180328, end: 20180328
  26. TAXOL [Suspect]
     Active Substance: PACLITAXEL
     Indication: Breast cancer
     Dosage: 147.76 MG, QW (WEEKLY; LAST DOSE 09 APR 2018)
     Route: 042
     Dates: start: 20180328, end: 20180409
  27. TRASTUZUMAB [Suspect]
     Active Substance: TRASTUZUMAB
     Dosage: 372 MG, Q3W (EVERY 3 WEEKS)
     Route: 041
     Dates: start: 20180626, end: 20181010
  28. TRASTUZUMAB [Suspect]
     Active Substance: TRASTUZUMAB
     Dosage: 372.000MG TIW
     Route: 042
     Dates: start: 20180626, end: 20181010
  29. TRASTUZUMAB [Suspect]
     Active Substance: TRASTUZUMAB
     Dosage: 378 MG, Q3W (EVERY 3 WEEKS (MOST RECENT DOSE WAS RECEIVED ON 09 JAN 2019)
     Route: 041
     Dates: start: 20181123, end: 20181123
  30. TRASTUZUMAB [Suspect]
     Active Substance: TRASTUZUMAB
     Dosage: 378 MG, Q3W (EVERY 3 WEEKS)
     Route: 041
     Dates: start: 20181214, end: 20190109
  31. TRASTUZUMAB [Suspect]
     Active Substance: TRASTUZUMAB
     Indication: Product used for unknown indication
     Dosage: 378 MG, Q3W (EVERY 3 WEEKS)
     Route: 042
     Dates: start: 20181102, end: 20181123
  32. TRASTUZUMAB [Suspect]
     Active Substance: TRASTUZUMAB
     Dosage: 378.000MG TIW
     Route: 042
     Dates: start: 20180328, end: 20180328
  33. TRASTUZUMAB [Suspect]
     Active Substance: TRASTUZUMAB
     Dosage: 378.000MG TIW
     Route: 042
     Dates: start: 20181214, end: 20190109
  34. TRASTUZUMAB [Suspect]
     Active Substance: TRASTUZUMAB
     Indication: HER2 positive breast cancer
     Dosage: 384 MG
     Route: 042
     Dates: start: 20180515, end: 20180515
  35. TRASTUZUMAB [Suspect]
     Active Substance: TRASTUZUMAB
     Dosage: 408 MG, Q3W
     Route: 065
     Dates: start: 20180423, end: 20180423
  36. TRASTUZUMAB [Suspect]
     Active Substance: TRASTUZUMAB
     Dosage: 408.000MG TIW
     Route: 042
     Dates: start: 20180423, end: 20180423
  37. TRASTUZUMAB [Suspect]
     Active Substance: TRASTUZUMAB
     Dosage: 600 MG, Q3W (EVERY 3 WEEK; MOST RECENT DOSE PRIOR TO THE EVENT: 11 OCT 2019)
     Route: 065
     Dates: start: 20180328, end: 20180328
  38. TRASTUZUMAB [Suspect]
     Active Substance: TRASTUZUMAB
     Dosage: 600 MG, Q3W (EVERY 3 WEEKS)
     Route: 065
     Dates: start: 20191011, end: 20191011
  39. TRASTUZUMAB [Suspect]
     Active Substance: TRASTUZUMAB
     Dosage: 600.000MG TIW
     Route: 042
     Dates: start: 20180328, end: 20180328
  40. TRASTUZUMAB [Suspect]
     Active Substance: TRASTUZUMAB
     Dosage: 600.000MG TIW
     Route: 042
     Dates: start: 20180626
  41. TRASTUZUMAB [Suspect]
     Active Substance: TRASTUZUMAB
     Dosage: 600.000MG TIW
     Route: 042
     Dates: start: 20191011, end: 20191025
  42. ADO-TRASTUZUMAB EMTANSINE [Suspect]
     Active Substance: ADO-TRASTUZUMAB EMTANSINE
     Indication: HER2 positive breast cancer
     Dosage: 230.4 MG, Q3W (EVERY 3 WEEK; DOSE ON 17/MAY/2019, MOST RECENT DOSE PRIOR TO THE EVENT: 28 JUN 2019)
     Route: 042
     Dates: start: 20190131, end: 20190517
  43. VINORELBINE [Suspect]
     Active Substance: VINORELBINE TARTRATE
     Indication: HER2 positive breast cancer
     Dosage: 50 MG
     Route: 048
     Dates: start: 20191011, end: 20191025
  44. VINORELBINE [Suspect]
     Active Substance: VINORELBINE TARTRATE
     Indication: Product used for unknown indication
     Dosage: 50 UG
     Route: 048
     Dates: start: 20191011, end: 20191025
  45. VINORELBINE [Suspect]
     Active Substance: VINORELBINE TARTRATE
     Route: 048
     Dates: start: 20191028
  46. Bepanthen [Concomitant]
     Indication: Product used for unknown indication
     Dosage: UNK
     Route: 065
     Dates: start: 20180619
  47. Bepanthen [Concomitant]
     Dosage: UNK
     Route: 065
     Dates: start: 20180725
  48. DEXPANTHENOL\HYALURONATE SODIUM [Concomitant]
     Active Substance: DEXPANTHENOL\HYALURONATE SODIUM
     Indication: Conjunctivitis
     Dosage: UNK
     Route: 065
     Dates: start: 20180619
  49. DEXPANTHENOL\HYALURONATE SODIUM [Concomitant]
     Active Substance: DEXPANTHENOL\HYALURONATE SODIUM
     Dosage: UNK
     Route: 065
     Dates: start: 20180619
  50. DEXPANTHENOL\HYALURONATE SODIUM [Concomitant]
     Active Substance: DEXPANTHENOL\HYALURONATE SODIUM
     Dosage: UNK
     Route: 065
     Dates: start: 20180619
  51. DEXPANTHENOL\HYALURONATE SODIUM [Concomitant]
     Active Substance: DEXPANTHENOL\HYALURONATE SODIUM
     Dosage: UNK
     Route: 065
     Dates: start: 20180619
  52. DEXPANTHENOL [Concomitant]
     Active Substance: DEXPANTHENOL
     Indication: Product used for unknown indication
     Dosage: UNK
     Route: 065
     Dates: start: 20180619
  53. DEXPANTHENOL [Concomitant]
     Active Substance: DEXPANTHENOL
     Dosage: UNK
     Route: 065
     Dates: start: 20180725
  54. CALCIUM CARBONATE\CHOLECALCIFEROL [Concomitant]
     Active Substance: CALCIUM CARBONATE\CHOLECALCIFEROL
     Indication: Product used for unknown indication
     Dosage: ONGOING = CHECKED
     Route: 065
     Dates: start: 20190425
  55. DEXAMETHASONE [Concomitant]
     Active Substance: DEXAMETHASONE
     Indication: Product used for unknown indication
     Dosage: UNK
     Route: 065
     Dates: start: 20190628, end: 20190830
  56. LOPERAMIDE HYDROCHLORIDE [Concomitant]
     Active Substance: LOPERAMIDE HYDROCHLORIDE
     Indication: Product used for unknown indication
     Dosage: UNK
     Route: 065
     Dates: start: 20200108
  57. HYDROMORPHONE HYDROCHLORIDE [Concomitant]
     Active Substance: HYDROMORPHONE HYDROCHLORIDE
     Indication: Product used for unknown indication
     Route: 065
  58. KYTRIL [Concomitant]
     Active Substance: GRANISETRON HYDROCHLORIDE
     Indication: Product used for unknown indication
     Dosage: ONGOING = NOT CHECKED
     Route: 065
     Dates: start: 20190628, end: 20190830
  59. NYSTATIN [Concomitant]
     Active Substance: NYSTATIN
     Indication: Product used for unknown indication
     Route: 065
  60. OCTENIDINE\PHENOXYETHANOL [Concomitant]
     Active Substance: OCTENIDINE\PHENOXYETHANOL
     Indication: Onycholysis
     Dosage: UNK
     Route: 065
     Dates: start: 20180725
  61. PANTOPRAZOLE SODIUM [Concomitant]
     Active Substance: PANTOPRAZOLE SODIUM
     Indication: Product used for unknown indication
     Dosage: ONGOING = CHECKED
     Route: 065
     Dates: start: 20191011
  62. XGEVA [Concomitant]
     Active Substance: DENOSUMAB
     Indication: Product used for unknown indication
     Dosage: UNK
     Route: 065
     Dates: start: 20191219
  63. ZOFRAN [Concomitant]
     Active Substance: ONDANSETRON HYDROCHLORIDE
     Indication: Product used for unknown indication
     Dosage: UNK
     Route: 065

REACTIONS (12)
  - Pain of skin [Recovered/Resolved]
  - Breast cancer metastatic [Recovering/Resolving]
  - Febrile neutropenia [Recovered/Resolved]
  - Stomatitis [Recovered/Resolved]
  - Skin lesion [Recovering/Resolving]
  - Intentional product use issue [Unknown]
  - Tumour pain [Recovered/Resolved]
  - Off label use [Unknown]
  - Overdose [Unknown]
  - Dyspnoea [Recovered/Resolved]
  - C-reactive protein increased [Recovered/Resolved]
  - Diarrhoea [Recovered/Resolved]

NARRATIVE: CASE EVENT DATE: 20190920
